FAERS Safety Report 16894030 (Version 1)
Quarter: 2019Q4

REPORT INFORMATION
  Report Type: Spontaneous
  Country: US (occurrence: US)
  Receive Date: 20191008
  Receipt Date: 20191008
  Transmission Date: 20200122
  Serious: No
  Sender: FDA-Public Use
  Company Number: US-INDIVIOR US-INDV-112104-2018

PATIENT
  Age: 70 Year
  Sex: Female

DRUGS (4)
  1. HYDROCODONE [Concomitant]
     Active Substance: HYDROCODONE
     Indication: PAIN
     Dosage: UNK
     Route: 065
  2. SUBOXONE [Suspect]
     Active Substance: BUPRENORPHINE HYDROCHLORIDE\NALOXONE HYDROCHLORIDE
     Indication: PAIN IN EXTREMITY
     Dosage: WHOLE FILM EVERY 4 HOURS OR AS NEEDED
     Route: 060
  3. SUBOXONE [Suspect]
     Active Substance: BUPRENORPHINE HYDROCHLORIDE\NALOXONE HYDROCHLORIDE
     Dosage: CUTTING AND TAKING HALF A FILM EVERY 4 HOURS
     Route: 060
  4. SUBOXONE [Suspect]
     Active Substance: BUPRENORPHINE HYDROCHLORIDE\NALOXONE HYDROCHLORIDE
     Dosage: CUTTING AND TAKING HALF A FILM DAILY
     Route: 060

REACTIONS (9)
  - Off label use [Not Recovered/Not Resolved]
  - Ear discomfort [Unknown]
  - Intentional underdose [Recovered/Resolved]
  - Dry mouth [Unknown]
  - Wrong technique in product usage process [Not Recovered/Not Resolved]
  - Oral administration complication [Unknown]
  - Dry eye [Unknown]
  - Xerosis [Unknown]
  - Inappropriate schedule of product administration [Recovered/Resolved]
